FAERS Safety Report 8669812 (Version 3)
Quarter: 2012Q4

REPORT INFORMATION
  Report Type: Report from Study
  Country: CA (occurrence: CA)
  Receive Date: 20120718
  Receipt Date: 20121203
  Transmission Date: 20130627
  Serious: Yes (Hospitalization, Other)
  Sender: FDA-Public Use
  Company Number: CA-JNJFOC-20120704355

PATIENT
  Sex: Female
  Weight: 46 kg

DRUGS (12)
  1. REMICADE [Suspect]
     Indication: CROHN^S DISEASE
     Route: 042
  2. REMICADE [Suspect]
     Indication: CROHN^S DISEASE
     Dosage: once in 6 hour; 67 infusions
     Route: 042
     Dates: start: 20070307
  3. LENOLTEC NOS [Concomitant]
     Route: 065
  4. ATIVAN [Concomitant]
     Route: 065
  5. CYPROHEPTADINE [Concomitant]
     Route: 065
  6. CITALOPRAM [Concomitant]
     Route: 065
  7. HYDROMORPHONE [Concomitant]
     Route: 065
  8. HYDROMORPH CONTIN [Concomitant]
     Route: 065
  9. LOMOTIL [Concomitant]
     Route: 065
  10. ENTOCORT [Concomitant]
     Route: 065
  11. ADALAT XL [Concomitant]
     Route: 065
  12. VITAMIN B12 [Concomitant]
     Route: 065

REACTIONS (2)
  - Renal cancer [Unknown]
  - Tooth infection [Recovered/Resolved]
